FAERS Safety Report 4579029-9 (Version None)
Quarter: 2005Q1

REPORT INFORMATION
  Report Type: 
  Country: None (occurrence: None)
  Receive Date: 20050119
  Receipt Date: 20040908
  Transmission Date: 20050727
  Serious: Yes (Death)
  Sender: FDA-Public Use
  Company Number: US-JNJFOC-20040808678

PATIENT
  Age: 53 Year
  Sex: Male
  Weight: 61.2356 kg

DRUGS (7)
  1. DOXIL [Suspect]
     Indication: ACUTE LYMPHOCYTIC LEUKAEMIA
     Dosage: 83 MG, INTRAVENOUS
     Route: 042
     Dates: start: 20031111, end: 20031111
  2. GLEEVEC [Concomitant]
  3. DECADRON [Concomitant]
  4. CYTOXAN [Concomitant]
  5. METHOTREXATE [Concomitant]
  6. FAMVIR [Concomitant]
  7. ATENOLOL [Concomitant]

REACTIONS (2)
  - LEUKAEMIA [None]
  - PANCYTOPENIA [None]
